FAERS Safety Report 7211811-1 (Version None)
Quarter: 2011Q1

REPORT INFORMATION
  Report Type: 
  Country: None (occurrence: None)
  Receive Date: 20110105
  Receipt Date: 20101228
  Transmission Date: 20110831
  Serious: Yes (Other)
  Sender: FDA-Public Use
  Company Number: US-GILEAD-2010-0034068

PATIENT
  Age: 60 Year
  Sex: Female

DRUGS (1)
  1. LETAIRIS [Suspect]
     Indication: PULMONARY ARTERIAL HYPERTENSION
     Route: 048
     Dates: start: 20101112, end: 20101101

REACTIONS (5)
  - BACK PAIN [None]
  - DIZZINESS [None]
  - BLOOD PRESSURE DECREASED [None]
  - HAEMORRHAGE [None]
  - ASTHENIA [None]
